FAERS Safety Report 5510428-4 (Version None)
Quarter: 2007Q4

REPORT INFORMATION
  Report Type: 
  Country: None (occurrence: None)
  Receive Date: 20071108
  Receipt Date: 20071030
  Transmission Date: 20080405
  Serious: Yes (Hospitalization)
  Sender: FDA-Public Use
  Company Number: IT-PFIZER INC-2007091383

PATIENT
  Sex: Male

DRUGS (6)
  1. ZYVOXID TABLET [Suspect]
     Indication: PNEUMONIA STAPHYLOCOCCAL
     Route: 048
     Dates: start: 20071008, end: 20071015
  2. NICIZINA [Concomitant]
     Route: 048
  3. PYRIDOXINE HYDROCHLORIDE [Concomitant]
     Route: 048
  4. ETAPIAM [Concomitant]
     Route: 048
  5. RIFADIN [Concomitant]
     Route: 048
  6. LIMPIDEX [Concomitant]
     Route: 048

REACTIONS (1)
  - EPISTAXIS [None]
